FAERS Safety Report 21094960 (Version 1)
Quarter: 2022Q3

REPORT INFORMATION
  Report Type: Spontaneous
  Country: US (occurrence: None)
  Receive Date: 20220715
  Receipt Date: 20220715
  Transmission Date: 20221027
  Serious: Yes (Other)
  Sender: FDA-Public Use
  Company Number: None

PATIENT
  Age: 30 Year
  Sex: Male
  Weight: 104.4 kg

DRUGS (1)
  1. MAGNESIUM CITRATE [Suspect]
     Active Substance: MAGNESIUM CITRATE
     Dosage: OTHER QUANTITY : 10 OUNCE(S);?FREQUENCY : AS NEEDED;?
     Route: 048

REACTIONS (3)
  - Recalled product administered [None]
  - Product taste abnormal [None]
  - Feeling abnormal [None]
